FAERS Safety Report 4720879-3 (Version None)
Quarter: 2005Q3

REPORT INFORMATION
  Report Type: 
  Country: None (occurrence: None)
  Receive Date: 20050719
  Receipt Date: 20041218
  Transmission Date: 20060218
  Serious: Yes (Other)
  Sender: FDA-Public Use
  Company Number: 2004116541

PATIENT
  Age: 67 Year
  Sex: Male
  Weight: 61.2356 kg

DRUGS (15)
  1. CELEBREX [Suspect]
     Indication: OSTEOARTHRITIS
     Dosage: 200 MG (200 MG, 1 IN 1 D), UNKNOWN
     Route: 065
     Dates: start: 19990101
  2. CELEBREX [Suspect]
     Indication: PAIN
     Dosage: 200 MG (200 MG, 1 IN 1 D), UNKNOWN
     Route: 065
     Dates: start: 19990101
  3. OXYCODONE (OXYCODONE) [Concomitant]
  4. TAMSULOSIN HCL [Concomitant]
  5. ROSUVASTATIN (ROSUVASTATIN) [Concomitant]
  6. GLYCERYL TRINITRATE (GLYCERYL TRINITRATE) [Concomitant]
  7. SERETIDE MITE (FLUTICASONE PROPIONATE, SALMETEROL XINAFOATE) [Concomitant]
  8. COMBIVENT (IPRATROPIUM BROMIDE, SALBUTAMIL SULFATE) [Concomitant]
  9. ASPIRIN [Concomitant]
  10. ISOSORBIDE DINITRATE [Concomitant]
  11. METOPROLOL SUCCINATE [Concomitant]
  12. TEMAZEPAM [Concomitant]
  13. RAMIPRIL [Concomitant]
  14. CALCIUM WITH VITAMIN D (CALCIUM PHOSPHATE, CALCIUM SODIUM LACTATE, ERG [Concomitant]
  15. MULTIVITAMINS (ASCORBIC ACID, ERGOCALCIFEROL, FOLIC ACID, NICOTINAMIDE [Concomitant]

REACTIONS (3)
  - ANGINA PECTORIS [None]
  - MYOCARDIAL INFARCTION [None]
  - PAIN [None]
